FAERS Safety Report 10557090 (Version 7)
Quarter: 2021Q4

REPORT INFORMATION
  Report Type: Spontaneous
  Country: US (occurrence: US)
  Receive Date: 20141031
  Receipt Date: 20211005
  Transmission Date: 20220303
  Serious: No
  Sender: FDA-Public Use
  Company Number: US-PFIZER INC-2014296947

PATIENT
  Age: 75 Year
  Sex: Female
  Weight: 80.27 kg

DRUGS (20)
  1. REVATIO [Suspect]
     Active Substance: SILDENAFIL CITRATE
     Indication: Pulmonary hypertension
     Dosage: 20 MG, 3X/DAY (TAKE ONE TABLET THREE TIMES A DAY BY ORAL ROUTE FOR 90 DAYS)
     Route: 048
     Dates: start: 20130205
  2. REVATIO [Suspect]
     Active Substance: SILDENAFIL CITRATE
     Indication: Pulmonary fibrosis
     Dosage: UNK, 2X/DAY
  3. REVATIO [Suspect]
     Active Substance: SILDENAFIL CITRATE
     Indication: Cor pulmonale chronic
  4. REVATIO [Suspect]
     Active Substance: SILDENAFIL CITRATE
     Indication: Pulmonary arterial hypertension
  5. ALBUTEROL SULFATE [Concomitant]
     Active Substance: ALBUTEROL SULFATE
     Indication: Asthma
     Dosage: 2 PUFFS ONCE A DAY
     Route: 055
  6. LASIX [Concomitant]
     Active Substance: FUROSEMIDE
     Indication: Pulmonary hypertension
     Dosage: 20 MG, 2X/DAY
     Route: 048
  7. LASIX [Concomitant]
     Active Substance: FUROSEMIDE
     Dosage: 20 MG, 1X/DAY
     Route: 048
  8. PLAQUENIL [Concomitant]
     Active Substance: HYDROXYCHLOROQUINE SULFATE
     Indication: Systemic lupus erythematosus
     Dosage: 200 MG, 2X/DAY (WITH FOOD OR MILK)
     Route: 048
  9. PLAQUENIL [Concomitant]
     Active Substance: HYDROXYCHLOROQUINE SULFATE
     Indication: Pulmonary hypertension
     Dosage: 200 MG, 1X/DAY, (WITH FOOD OR MILK)
     Route: 048
  10. LOSARTAN POTASSIUM [Concomitant]
     Active Substance: LOSARTAN POTASSIUM
     Indication: Essential hypertension
     Dosage: 50 MG, 1X/DAY
     Route: 048
  11. POTASSIUM BICARB-CITRIC ACID [Concomitant]
     Dosage: 10 MEQ, 1X/DAY
  12. VITAMIN C [Concomitant]
     Active Substance: ASCORBIC ACID
     Dosage: 500 MG, 1X/DAY
  13. VITAMIN B COMPLEX [Concomitant]
     Active Substance: CYANOCOBALAMIN\DEXPANTHENOL\NIACINAMIDE\PYRIDOXINE HYDROCHLORIDE\RIBOFLAVIN 5^-PHOSPHATE SODIUM\THIA
     Dosage: UNK (AS DIRECTED), 1X/DAY
  14. OMEGA 3 180 EPA [Concomitant]
     Dosage: 1 DF, 1X/DAY
  15. CALCIUM [Concomitant]
     Active Substance: CALCIUM
     Dosage: 600 MG, 1X/DAY (WITH MEALS)
  16. NIACIN [Concomitant]
     Active Substance: NIACIN
     Dosage: 500 MG, 1X/DAY (1 TABLET)
  17. DIPHENHYDRAMINE HYDROCHLORIDE [Concomitant]
     Active Substance: DIPHENHYDRAMINE HYDROCHLORIDE
     Indication: Sleep disorder
     Dosage: 25 MG, 1X/DAY (AT BEDTIME)
  18. PROBIOTIC COMPLEX ACIDOPHILLUS [Concomitant]
     Dosage: 1 DF, UNK AS DIRECTED
  19. OXYGEN [Concomitant]
     Active Substance: OXYGEN
     Dosage: 2 LITERS/MIN (AS DIRECTED 24/7)
  20. BOSENTAN [Concomitant]
     Active Substance: BOSENTAN
     Indication: Pulmonary hypertension
     Dosage: 62.5 MG, 2X/DAY (AS DIRECTED)
     Route: 048

REACTIONS (9)
  - Dyspnoea exertional [Unknown]
  - Cough [Unknown]
  - Nasal congestion [Unknown]
  - Upper-airway cough syndrome [Unknown]
  - Arthralgia [Unknown]
  - Myalgia [Unknown]
  - Peripheral swelling [Unknown]
  - Pruritus [Not Recovered/Not Resolved]
  - Product dose omission in error [Unknown]
